FAERS Safety Report 5367568-2 (Version None)
Quarter: 2007Q2

REPORT INFORMATION
  Report Type: 
  Country: None (occurrence: None)
  Receive Date: 20070622
  Receipt Date: 20061208
  Transmission Date: 20071010
  Serious: No
  Sender: FDA-Public Use
  Company Number: US-ASTRAZENECA-2006UW27283

PATIENT
  Age: 73 Year
  Sex: Female
  Weight: 61.2 kg

DRUGS (6)
  1. PULMICORT [Suspect]
     Indication: ASTHMA
     Route: 055
     Dates: start: 20060701
  2. PULMICORT [Suspect]
     Route: 055
  3. VERAPAMIL [Concomitant]
  4. LIPITOR [Concomitant]
  5. BABA ASA [Concomitant]
  6. CLONAZEPAM [Concomitant]

REACTIONS (2)
  - STOMACH DISCOMFORT [None]
  - URINE ODOUR ABNORMAL [None]
